FAERS Safety Report 11010282 (Version 1)
Quarter: 2015Q2

REPORT INFORMATION
  Report Type: Spontaneous
  Country: SE (occurrence: SE)
  Receive Date: 20150410
  Receipt Date: 20150410
  Transmission Date: 20150821
  Serious: Yes (Other)
  Sender: FDA-Public Use
  Company Number: SE-ACTAVIS-2015-07488

PATIENT
  Age: 74 Year
  Sex: Female

DRUGS (3)
  1. ALENDRONIC ACID (UNKNOWN) [Suspect]
     Active Substance: ALENDRONIC ACID
     Indication: OSTEOPOROSIS
     Dosage: 70 MG, 1/WEEK
     Route: 065
  2. AMIMOX [Concomitant]
     Active Substance: AMOXICILLIN
     Indication: EAR INFECTION
     Dosage: UNK
     Route: 065
  3. TERRA-CORTRIL POLYMYXIN B [Concomitant]
     Active Substance: HYDROCORTISONE\OXYTETRACYCLINE HYDROCHLORIDE\POLYMYXIN B SULFATE
     Indication: EAR INFECTION
     Dosage: UNK
     Route: 065

REACTIONS (1)
  - Osteonecrosis [Not Recovered/Not Resolved]
